FAERS Safety Report 25605334 (Version 1)
Quarter: 2025Q3

REPORT INFORMATION
  Report Type: Spontaneous
  Country: US (occurrence: US)
  Receive Date: 20250725
  Receipt Date: 20250725
  Transmission Date: 20251020
  Serious: Yes (Other)
  Sender: ACCORD
  Company Number: US-Accord-496597

PATIENT
  Age: 6 Decade
  Sex: Female
  Weight: 83.5 kg

DRUGS (4)
  1. LEVOTHYROXINE [Suspect]
     Active Substance: LEVOTHYROXINE
     Indication: Hypothyroidism
  2. SEMAGLUTIDE [Concomitant]
     Active Substance: SEMAGLUTIDE
     Indication: Obesity
     Dosage: AT 0.25 MILLIGRAMS WEEKLY FOR 1 MONTH AND SUBSEQUENTLY INCREASING TO 0.5 MILLIGRAMS
  3. METFORMIN [Concomitant]
     Active Substance: METFORMIN HYDROCHLORIDE
     Indication: Type 2 diabetes mellitus
  4. METFORMIN [Concomitant]
     Active Substance: METFORMIN HYDROCHLORIDE
     Indication: Type 2 diabetes mellitus
     Dosage: INCREASE

REACTIONS (1)
  - Hyperthyroidism [Recovered/Resolved]
